FAERS Safety Report 9961395 (Version 2)
Quarter: 2014Q2

REPORT INFORMATION
  Report Type: Spontaneous
  Country: DE (occurrence: DE)
  Receive Date: 20140305
  Receipt Date: 20140401
  Transmission Date: 20141212
  Serious: Yes (Life-Threatening, Hospitalization)
  Sender: FDA-Public Use
  Company Number: DE-JNJFOC-20140213456

PATIENT
  Age: 72 Year
  Sex: Male

DRUGS (2)
  1. ZYTIGA [Suspect]
     Indication: PROSTATE CANCER METASTATIC
     Route: 048
     Dates: start: 201310
  2. PREDNISOLONE [Suspect]
     Indication: PROSTATE CANCER METASTATIC
     Route: 065

REACTIONS (9)
  - Acute myocardial infarction [Recovered/Resolved]
  - Haematochezia [Unknown]
  - Epistaxis [Unknown]
  - Respiratory failure [Unknown]
  - Anaemia [Unknown]
  - Candiduria [Unknown]
  - Chronic hepatitis B [Unknown]
  - Atrial fibrillation [Unknown]
  - Coronary artery stenosis [Unknown]
